FAERS Safety Report 24705161 (Version 1)
Quarter: 2024Q4

REPORT INFORMATION
  Report Type: Spontaneous
  Country: US (occurrence: None)
  Receive Date: 20241205
  Receipt Date: 20241205
  Transmission Date: 20250115
  Serious: Yes (unspecified)
  Sender: Public
  Company Number: None

PATIENT
  Age: 56 Year
  Sex: Male
  Weight: 104 kg

DRUGS (1)
  1. PROCHLORPERAZINE [Suspect]
     Active Substance: PROCHLORPERAZINE
     Indication: Nausea
     Dosage: OTHER FREQUENCY : ONCE;?
     Route: 042
     Dates: start: 20200220, end: 20200220

REACTIONS (3)
  - Extrapyramidal disorder [None]
  - Feeling abnormal [None]
  - Dyskinesia [None]

NARRATIVE: CASE EVENT DATE: 20200220
